FAERS Safety Report 5482831-2 (Version None)
Quarter: 2007Q4

REPORT INFORMATION
  Report Type: 
  Country: None (occurrence: None)
  Receive Date: 20071011
  Receipt Date: 20071001
  Transmission Date: 20080405
  Serious: Yes (Hospitalization, Disabling, Other)
  Sender: FDA-Public Use
  Company Number: US-PFIZER INC-2007047900

PATIENT
  Sex: Female
  Weight: 65.8 kg

DRUGS (2)
  1. BEXTRA [Suspect]
     Indication: ARTHRITIS
     Route: 048
     Dates: start: 20010801, end: 20011201
  2. LEXAPRO [Concomitant]
     Indication: DEPRESSION
     Dates: start: 20050301

REACTIONS (2)
  - ACUTE MYOCARDIAL INFARCTION [None]
  - DEPRESSION [None]
